FAERS Safety Report 7947081-6 (Version None)
Quarter: 2011Q4

REPORT INFORMATION
  Report Type: 
  Country: None (occurrence: None)
  Receive Date: 20111129
  Receipt Date: 20110926
  Transmission Date: 20120403
  Serious: No
  Sender: FDA-Public Use
  Company Number: US-ASTRAZENECA-2011SE57719

PATIENT
  Age: 44 Year
  Sex: Male
  Weight: 104.3 kg

DRUGS (2)
  1. LISINOPRIL [Concomitant]
     Indication: BLOOD PRESSURE ABNORMAL
  2. VIMOVO [Suspect]
     Indication: ARTHRALGIA
     Dosage: 500 MG/20 MG, BID (TWO TIMES DAILY)
     Route: 048
     Dates: start: 20110923, end: 20110925

REACTIONS (6)
  - GASTRIC DISORDER [None]
  - OFF LABEL USE [None]
  - FAECES DISCOLOURED [None]
  - DYSPEPSIA [None]
  - FLATULENCE [None]
  - POLLAKIURIA [None]
